FAERS Safety Report 9593790 (Version 6)
Quarter: 2015Q3

REPORT INFORMATION
  Report Type: Report from Study
  Country: US (occurrence: US)
  Receive Date: 20131004
  Receipt Date: 20150713
  Transmission Date: 20151125
  Serious: Yes (Death, Other)
  Sender: FDA-Public Use
  Company Number: US-ALEXION-A201301956

PATIENT

DRUGS (1)
  1. SOLIRIS [Suspect]
     Active Substance: ECULIZUMAB
     Indication: HAEMOLYTIC URAEMIC SYNDROME
     Dosage: UNK
     Route: 042

REACTIONS (17)
  - Depressed mood [Unknown]
  - Dizziness [Recovering/Resolving]
  - Arthralgia [Unknown]
  - Cardiomegaly [Unknown]
  - Syncope [Not Recovered/Not Resolved]
  - Dry skin [Unknown]
  - Vomiting [Unknown]
  - Dizziness [Not Recovered/Not Resolved]
  - Myocardial infarction [Fatal]
  - Cardiac valve disease [Not Recovered/Not Resolved]
  - Pruritus [Unknown]
  - Nausea [Unknown]
  - Vomiting [Unknown]
  - Faeces discoloured [Unknown]
  - Peritonitis [Unknown]
  - Musculoskeletal stiffness [Unknown]
  - Hypotension [Recovered/Resolved]

NARRATIVE: CASE EVENT DATE: 201308
